FAERS Safety Report 7976883-5 (Version None)
Quarter: 2011Q4

REPORT INFORMATION
  Report Type: 
  Country: None (occurrence: None)
  Receive Date: 20111213
  Receipt Date: 20111110
  Transmission Date: 20120403
  Serious: No
  Sender: FDA-Public Use
  Company Number: US-AMGEN-USASP2011059066

PATIENT
  Age: 64 Year
  Sex: Female

DRUGS (4)
  1. BENICAR [Concomitant]
  2. NIFEDIAC [Concomitant]
  3. BENAZEPRIL HYDROCHLORIDE [Concomitant]
  4. ENBREL [Suspect]
     Indication: MUSCULOSKELETAL PAIN
     Dosage: 50 MG, QWK
     Dates: start: 20091101

REACTIONS (3)
  - BLOOD PRESSURE INCREASED [None]
  - BRONCHITIS [None]
  - FUNGAL INFECTION [None]
